FAERS Safety Report 6546497-2 (Version None)
Quarter: 2010Q1

REPORT INFORMATION
  Report Type: 
  Country: None (occurrence: None)
  Receive Date: 20100115
  Receipt Date: 20100107
  Transmission Date: 20100710
  Serious: Yes (Other)
  Sender: FDA-Public Use
  Company Number: 2010-00001

PATIENT
  Age: 61 Year
  Sex: Female
  Weight: 65.7716 kg

DRUGS (9)
  1. ZICAM COLD REMEDY ORAL MIST [Suspect]
     Indication: THROAT IRRITATION
     Dosage: ORAL 4X DAY, 1 DAY USE
     Route: 048
     Dates: start: 20100105, end: 20100105
  2. MULTI-VITAMIN [Concomitant]
  3. VIT C + E [Concomitant]
  4. LIQUID B COMPLEX [Concomitant]
  5. OMEGA 3 + 6 [Concomitant]
  6. COQ10 [Concomitant]
  7. ZINC [Concomitant]
  8. CALCIUM [Concomitant]
  9. DHEA [Concomitant]

REACTIONS (4)
  - DIZZINESS [None]
  - HALO VISION [None]
  - LOSS OF CONSCIOUSNESS [None]
  - VISION BLURRED [None]
